FAERS Safety Report 6311677-8 (Version None)
Quarter: 2009Q3

REPORT INFORMATION
  Report Type: 
  Country: None (occurrence: None)
  Receive Date: 20090813
  Receipt Date: 20090813
  Transmission Date: 20100115
  Serious: Yes (Other)
  Sender: FDA-Public Use
  Company Number: None

PATIENT
  Sex: Male
  Weight: 76.2043 kg

DRUGS (10)
  1. FLOMAX [Suspect]
     Indication: DYSURIA
     Dosage: 0.4 MG DAILY
     Dates: start: 20061101, end: 20080801
  2. FLOMAX [Suspect]
     Indication: PROSTATOMEGALY
     Dosage: 0.4 MG DAILY
     Dates: start: 20061101, end: 20080801
  3. CARTIA XT [Suspect]
     Indication: ATRIAL FIBRILLATION
     Dosage: 120 MG DAILY
     Dates: start: 20081201, end: 20090606
  4. KLOR-CON [Concomitant]
  5. WARFARIN [Concomitant]
  6. HYDRALAZINE HCL [Concomitant]
  7. CARBIDOPA-LEVO [Concomitant]
  8. FUROSEMIDE [Concomitant]
  9. SPIRIVA [Concomitant]
  10. XOPENEX [Concomitant]

REACTIONS (3)
  - CARDIAC DISORDER [None]
  - GYNAECOMASTIA [None]
  - LUNG DISORDER [None]
